FAERS Safety Report 7384054-9 (Version None)
Quarter: 2011Q1

REPORT INFORMATION
  Report Type: 
  Country: None (occurrence: None)
  Receive Date: 20110330
  Receipt Date: 20110323
  Transmission Date: 20110831
  Serious: Yes (Life-Threatening, Hospitalization)
  Sender: FDA-Public Use
  Company Number: CHPA2011GB04466

PATIENT
  Age: 2 Year
  Sex: Male

DRUGS (3)
  1. TRIMETHOPRIM SANDOZ [Suspect]
     Indication: UROSEPSIS
     Route: 048
  2. IBUPROFEN [Suspect]
     Indication: UROSEPSIS
     Route: 048
  3. PARACETAMOL [Suspect]
     Indication: UROSEPSIS
     Route: 048

REACTIONS (8)
  - URETERIC OBSTRUCTION [None]
  - BLOOD UREA INCREASED [None]
  - RENAL DISORDER [None]
  - TUBULOINTERSTITIAL NEPHRITIS [None]
  - BLOOD CREATININE INCREASED [None]
  - HYPERTENSION [None]
  - RENAL PAPILLARY NECROSIS [None]
  - RENAL FAILURE [None]
